FAERS Safety Report 6668016-2 (Version None)
Quarter: 2010Q2

REPORT INFORMATION
  Report Type: 
  Country: None (occurrence: None)
  Receive Date: 20100405
  Receipt Date: 20100326
  Transmission Date: 20101027
  Serious: Yes (Hospitalization)
  Sender: FDA-Public Use
  Company Number: DE-ABBOTT-10P-062-0635409-00

PATIENT
  Sex: Female
  Weight: 49 kg

DRUGS (6)
  1. ZEMPLAR [Suspect]
     Indication: HYPERPARATHYROIDISM SECONDARY
     Route: 042
     Dates: start: 20080718
  2. ZEMPLAR [Suspect]
     Route: 042
     Dates: start: 20081106
  3. RENAGEL [Concomitant]
     Indication: BLOOD PHOSPHORUS ABNORMAL
     Dosage: 800 MILLIGRAMS
  4. RENACET [Concomitant]
     Indication: BLOOD PHOSPHORUS ABNORMAL
     Dosage: 950 MILLIGRAMS
  5. ALPHACALCIDOL [Concomitant]
     Indication: RENAL FAILURE
  6. ABSEAMED [Concomitant]
     Indication: ANAEMIA

REACTIONS (2)
  - HOSPITALISATION [None]
  - SHUNT OCCLUSION [None]
